FAERS Safety Report 4856160-1 (Version None)
Quarter: 2005Q4

REPORT INFORMATION
  Report Type: 
  Country: None (occurrence: None)
  Receive Date: 20051216
  Receipt Date: 20051005
  Transmission Date: 20060501
  Serious: Yes (Hospitalization)
  Sender: FDA-Public Use
  Company Number: US-MERCK-0510USA04560

PATIENT
  Age: 31 Year
  Sex: Female
  Weight: 95 kg

DRUGS (3)
  1. VIOXX [Suspect]
     Indication: PAIN IN EXTREMITY
     Route: 048
     Dates: start: 20030101, end: 20040801
  2. VIOXX [Suspect]
     Route: 048
  3. VIOXX [Suspect]
     Route: 065

REACTIONS (10)
  - ANGINA PECTORIS [None]
  - BUNDLE BRANCH BLOCK LEFT [None]
  - CARDIAC FAILURE CONGESTIVE [None]
  - CHEST DISCOMFORT [None]
  - CHEST PAIN [None]
  - CONGESTIVE CARDIOMYOPATHY [None]
  - HEART RATE IRREGULAR [None]
  - LIPOMA [None]
  - MYOCARDIAL INFARCTION [None]
  - PULMONARY VALVE STENOSIS [None]
